FAERS Safety Report 11343697 (Version 5)
Quarter: 2015Q4

REPORT INFORMATION
  Report Type: Report from Study
  Country: BR (occurrence: BR)
  Receive Date: 20150806
  Receipt Date: 20151118
  Transmission Date: 20160304
  Serious: Yes (Hospitalization)
  Sender: FDA-Public Use
  Company Number: BR-ABBVIE-15K-020-1427469-00

PATIENT
  Age: 77 Year
  Sex: Male
  Weight: 72 kg

DRUGS (18)
  1. FOLIC ACID. [Concomitant]
     Active Substance: FOLIC ACID
     Indication: ANAEMIA
  2. FINASTERIDE. [Concomitant]
     Active Substance: FINASTERIDE
     Indication: PROSTATIC DISORDER
     Route: 048
  3. CITONEURIN [Concomitant]
     Active Substance: CYANOCOBALAMIN\PYRIDOXINE HYDROCHLORIDE\THIAMINE
     Indication: ANAEMIA PROPHYLAXIS
     Dosage: 1 INJECTION PER MONTH
     Route: 030
  4. TAPAZOLE [Concomitant]
     Active Substance: METHIMAZOLE
     Indication: PROPHYLAXIS
  5. RIBOFLAVIN [Concomitant]
     Active Substance: RIBOFLAVIN
     Indication: VITAMIN SUPPLEMENTATION
     Route: 048
  6. HUMIRA [Suspect]
     Active Substance: ADALIMUMAB
     Dosage: INDUCTION DOSE, WEEK 2
     Route: 058
     Dates: start: 201506, end: 201506
  7. DAPSONE. [Concomitant]
     Active Substance: DAPSONE
     Indication: DERMATITIS HERPETIFORMIS
  8. CITONEURIN [Concomitant]
     Active Substance: CYANOCOBALAMIN\PYRIDOXINE HYDROCHLORIDE\THIAMINE
     Indication: ANAEMIA
     Dosage: 5000
     Route: 030
  9. HUMIRA [Suspect]
     Active Substance: ADALIMUMAB
     Route: 058
     Dates: start: 201507
  10. DOXAZOSIN MESYLATE. [Concomitant]
     Active Substance: DOXAZOSIN MESYLATE
     Indication: PROSTATIC DISORDER
     Dosage: MAGISTRAL FORMULATION
     Route: 048
     Dates: start: 2005
  11. DOXAZOSIN [Concomitant]
     Active Substance: DOXAZOSIN\DOXAZOSIN MESYLATE
     Indication: PROSTATIC DISORDER
     Route: 048
  12. HUMIRA [Suspect]
     Active Substance: ADALIMUMAB
     Indication: COLITIS ULCERATIVE
     Dosage: INDUCTION DOSE,WEEK 0
     Route: 058
     Dates: start: 20150622, end: 20150622
  13. FOLIC ACID. [Concomitant]
     Active Substance: FOLIC ACID
     Indication: HYPERSENSITIVITY
     Route: 048
  14. TAPAZOLE [Concomitant]
     Active Substance: METHIMAZOLE
     Indication: THYROID DISORDER
     Route: 048
  15. HUMIRA [Suspect]
     Active Substance: ADALIMUMAB
     Route: 058
     Dates: start: 20151005
  16. HUMIRA [Suspect]
     Active Substance: ADALIMUMAB
     Route: 058
     Dates: start: 201507, end: 20150706
  17. DAPSONE. [Concomitant]
     Active Substance: DAPSONE
     Indication: HYPERSENSITIVITY
     Route: 048
  18. RIBOFLAVIN [Concomitant]
     Active Substance: RIBOFLAVIN
     Indication: DERMATITIS HERPETIFORMIS

REACTIONS (6)
  - Hypotension [Recovered/Resolved]
  - Syncope [Recovered/Resolved]
  - Pneumonia [Recovered/Resolved]
  - Lung infection [Recovered/Resolved]
  - Immunodeficiency [Recovered/Resolved]
  - Influenza [Unknown]

NARRATIVE: CASE EVENT DATE: 20150708
